FAERS Safety Report 9014297 (Version 1)
Quarter: 2013Q1

REPORT INFORMATION
  Report Type: Report from Study
  Country: DE (occurrence: DE)
  Receive Date: 20130115
  Receipt Date: 20130115
  Transmission Date: 20140127
  Serious: Yes (Hospitalization)
  Sender: FDA-Public Use
  Company Number: DE-PFIZER INC-2013008407

PATIENT
  Age: 71 Year
  Sex: Male
  Weight: 90 kg

DRUGS (15)
  1. IRINOTECAN HCL [Suspect]
     Indication: COLORECTAL CANCER METASTATIC
     Dosage: UNK, MG/M2
     Route: 042
     Dates: start: 20120718, end: 20121219
  2. IRINOTECAN HCL [Suspect]
     Dosage: DOSE REDUCED TO 75%
     Route: 042
     Dates: start: 20120929
  3. LEUCOVORIN [Suspect]
     Indication: COLORECTAL CANCER METASTATIC
     Dosage: UNK MG/M2
     Route: 042
     Dates: start: 20120718, end: 20121219
  4. LEUCOVORIN [Suspect]
     Dosage: 300 MG, 1 IN 4 DAYS
     Route: 042
     Dates: start: 20120926
  5. OXALIPLATIN [Suspect]
     Indication: COLORECTAL CANCER METASTATIC
     Dosage: UNK MG/M2, UNK
     Route: 042
     Dates: start: 20120718, end: 20121219
  6. OXALIPLATIN [Suspect]
     Dosage: 128 MG, 1 IN 14 D
     Route: 042
     Dates: start: 20120926
  7. BEVACIZUMAB [Suspect]
     Indication: COLORECTAL CANCER METASTATIC
     Dosage: 5 MG/KG, UNK
     Route: 042
     Dates: start: 20120718, end: 20121219
  8. BEVACIZUMAB [Suspect]
     Dosage: UNK
     Route: 042
     Dates: start: 20120926
  9. FLUOROURACIL [Suspect]
     Indication: COLORECTAL CANCER METASTATIC
     Dosage: UNK MG/M2, UNK
     Route: 042
     Dates: start: 20120718, end: 20121219
  10. FLUOROURACIL [Suspect]
     Dosage: DOSE REDUCED TO 75%
     Route: 042
     Dates: start: 20120929
  11. XARELTO [Concomitant]
     Indication: THROMBOSIS PROPHYLAXIS
     Dosage: 20 MG, 1X/DAY
     Route: 048
  12. BISOPROLOL [Concomitant]
     Indication: HYPERTENSION
     Dosage: 2.5 MG, 2X/DAY
     Route: 048
  13. RAMIPRIL [Concomitant]
     Indication: HYPERTENSION
     Dosage: 2.5 MG, 2X/DAY
     Route: 048
  14. ACETYLDIGITOXIN [Concomitant]
     Indication: HYPERTENSION
     Dosage: UNK
     Route: 048
  15. SIMVASTATIN [Concomitant]
     Dosage: 20 MG, 1X/DAY
     Route: 048

REACTIONS (2)
  - Gastroenteritis [Recovered/Resolved]
  - Diarrhoea [Not Recovered/Not Resolved]
